FAERS Safety Report 19975402 (Version 11)
Quarter: 2023Q2

REPORT INFORMATION
  Report Type: Spontaneous
  Country: US (occurrence: US)
  Receive Date: 20211020
  Receipt Date: 20230405
  Transmission Date: 20230721
  Serious: No
  Sender: FDA-Public Use
  Company Number: US-PFIZER INC-2021882260

PATIENT
  Age: 62 Year
  Sex: Female

DRUGS (9)
  1. IBRANCE [Suspect]
     Active Substance: PALBOCICLIB
     Indication: Breast cancer female
     Dosage: EVERY DAY FOR 21 DAYS OF EACH 28 DAY CYCLE
     Route: 048
     Dates: start: 20210428
  2. BIOTIN [Concomitant]
     Active Substance: BIOTIN
     Dosage: 1000 UG
  3. CALCIUM [Concomitant]
     Active Substance: CALCIUM
     Dosage: 500/D
  4. VITAMIN D NOS [Concomitant]
     Active Substance: VITAMIN D NOS
     Dosage: ULTRA STRENGTH
  5. FOSAMAX [Concomitant]
     Active Substance: ALENDRONATE SODIUM
     Dosage: 70 MG
  6. LETROZOLE [Concomitant]
     Active Substance: LETROZOLE
     Dosage: 2.5 MG
  7. VITAMIN D NOS [Concomitant]
     Active Substance: VITAMIN D NOS
     Dosage: 2000 IU
  8. MELATONIN [Concomitant]
     Active Substance: MELATONIN
     Dosage: 3 MG
  9. ASCORBIC ACID [Concomitant]
     Active Substance: ASCORBIC ACID
     Dosage: 500 MG

REACTIONS (12)
  - Hepatic enzyme increased [Not Recovered/Not Resolved]
  - Confusional state [Not Recovered/Not Resolved]
  - Fatigue [Not Recovered/Not Resolved]
  - Hot flush [Not Recovered/Not Resolved]
  - Constipation [Unknown]
  - White blood cell count decreased [Recovered/Resolved]
  - Decreased appetite [Unknown]
  - Alopecia [Unknown]
  - Abdominal discomfort [Unknown]
  - Nausea [Unknown]
  - Neutrophil count decreased [Unknown]
  - Insomnia [Not Recovered/Not Resolved]

NARRATIVE: CASE EVENT DATE: 20210101
